FAERS Safety Report 4712943-X (Version None)
Quarter: 2005Q3

REPORT INFORMATION
  Report Type: 
  Country: None (occurrence: None)
  Receive Date: 20050711
  Receipt Date: 20050627
  Transmission Date: 20060218
  Serious: Yes (Hospitalization)
  Sender: FDA-Public Use
  Company Number: 2005CL000590

PATIENT
  Age: 55 Year
  Sex: Female

DRUGS (16)
  1. EXENATIDE (EXENATIDE) [Suspect]
     Indication: DIABETES MELLITUS NON-INSULIN-DEPENDENT
     Dosage: 10 MCG; BID; SC
     Route: 058
     Dates: start: 20040212, end: 20040824
  2. AMARYL [Concomitant]
  3. VITAMIN B-12 [Concomitant]
  4. BISOPROLOL [Concomitant]
  5. PROVERA [Concomitant]
  6. ISOCARD [Concomitant]
  7. BROCIN [Concomitant]
  8. CITRATE + D [Concomitant]
  9. CEPHALEXIN [Concomitant]
  10. PREMARIN [Concomitant]
  11. TOLNAFTATE [Concomitant]
  12. MYCOSTATIN [Concomitant]
  13. CEPHALEXIN [Concomitant]
  14. GENTAMICIN [Concomitant]
  15. ALUMINIUM MAGNESSIUM DIMETHYLPOLYSLLOXANE [Concomitant]
  16. METFORMIN HCL [Concomitant]

REACTIONS (15)
  - ABDOMINAL WALL DISORDER [None]
  - ANTIBODY TEST POSITIVE [None]
  - DRUG HYPERSENSITIVITY [None]
  - ERYTHEMA [None]
  - GANGRENE [None]
  - IMPAIRED HEALING [None]
  - INJECTION SITE ABSCESS [None]
  - INJECTION SITE CELLULITIS [None]
  - INJECTION SITE ERYTHEMA [None]
  - INJECTION SITE SWELLING [None]
  - PAIN [None]
  - PHARMACEUTICAL PRODUCT COMPLAINT [None]
  - SKIN LESION [None]
  - SKIN ULCER [None]
  - WOUND [None]
